FAERS Safety Report 8910930 (Version 2)
Quarter: 2013Q4

REPORT INFORMATION
  Report Type: Spontaneous
  Country: GB (occurrence: None)
  Receive Date: 20121113
  Receipt Date: 20131018
  Transmission Date: 20140711
  Serious: Yes (Death, Life-Threatening, Hospitalization)
  Sender: FDA-Public Use
  Company Number: 1481805

PATIENT
  Age: 80 Year
  Sex: Male

DRUGS (9)
  1. MITOXANTRONE HYDROCHLORIDE [Suspect]
     Indication: ACUTE MYELOID LEUKAEMIA
     Dosage: INTRAVENOUS (NOT OTHERWISE SPECIFIED)
     Route: 042
     Dates: start: 20120911, end: 20120928
  2. ONDANSETRON [Concomitant]
  3. LISINOPRIL [Concomitant]
  4. FELODIPINE [Concomitant]
  5. ASPIRIN [Concomitant]
  6. SIMVASTATIN [Concomitant]
  7. ALLOPURINOL [Concomitant]
  8. FLUCLOXACILLIN [Concomitant]
  9. SALINE [Concomitant]

REACTIONS (10)
  - Tumour lysis syndrome [None]
  - Renal failure acute [None]
  - Catheter site infection [None]
  - Anaemia [None]
  - Pulmonary oedema [None]
  - Local swelling [None]
  - Atrial fibrillation [None]
  - Acidosis [None]
  - Fluid overload [None]
  - Hyperkalaemia [None]
